FAERS Safety Report 5768350-4 (Version None)
Quarter: 2008Q2

REPORT INFORMATION
  Report Type: 
  Country: None (occurrence: None)
  Receive Date: 20080612
  Receipt Date: 20080423
  Transmission Date: 20081010
  Serious: No
  Sender: FDA-Public Use
  Company Number: US-ABBOTT-08P-163-0439873-00

PATIENT
  Sex: Male
  Weight: 65.83 kg

DRUGS (5)
  1. HUMIRA [Suspect]
     Indication: CROHN'S DISEASE
     Route: 058
     Dates: start: 20080122
  2. HUMIRA [Suspect]
     Route: 058
     Dates: start: 20080205, end: 20080219
  3. HUMIRA [Suspect]
     Route: 058
     Dates: start: 20080219
  4. MESALAMINE [Concomitant]
     Indication: CROHN'S DISEASE
     Dosage: 500MG 4 TABS TWICE A DAY
     Route: 048
     Dates: start: 19980101
  5. BUDESONIDE [Concomitant]
     Indication: CROHN'S DISEASE
     Dosage: 3MG X3 TABS THREE TIMES DAILY
     Route: 048
     Dates: start: 20030101

REACTIONS (5)
  - DRUG EFFECT DECREASED [None]
  - HEADACHE [None]
  - PAIN [None]
  - PAIN IN JAW [None]
  - PERIANAL ABSCESS [None]
